FAERS Safety Report 5593207-1 (Version None)
Quarter: 2008Q1

REPORT INFORMATION
  Report Type: 
  Country: None (occurrence: None)
  Receive Date: 20080115
  Receipt Date: 20080115
  Transmission Date: 20080703
  Serious: Yes (Disabling)
  Sender: FDA-Public Use
  Company Number: None

PATIENT
  Age: 83 Year
  Sex: Male
  Weight: 81.6475 kg

DRUGS (2)
  1. LEVAQUIN [Suspect]
     Indication: CYSTITIS
     Dosage: LEVAQUIN INTRAMUSCULAR ONCE IM
     Route: 030
     Dates: start: 20071212, end: 20071212
  2. LEVAQUIN [Suspect]
     Indication: CYSTITIS
     Dosage: LEVAQUIN 750 MG SEVEN PO
     Route: 048
     Dates: start: 20071212, end: 20071218

REACTIONS (1)
  - TENDON RUPTURE [None]
